FAERS Safety Report 8902218 (Version 1)
Quarter: 2012Q4

REPORT INFORMATION
  Report Type: 
  Country: GB (occurrence: GB)
  Receive Date: 20121112
  Receipt Date: 20121112
  Transmission Date: 20130627
  Serious: Yes (Hospitalization)
  Sender: FDA-Public Use
  Company Number: GB-JNJFOC-20121103507

PATIENT
  Age: 86 Year
  Sex: Male
  Weight: 91 kg

DRUGS (2)
  1. XARELTO [Suspect]
     Indication: POSTOPERATIVE CARE
     Route: 048
     Dates: start: 20120321, end: 20120327
  2. AMITRIPTYLINE [Concomitant]
     Route: 065

REACTIONS (4)
  - Gastrointestinal disorder [Unknown]
  - Procedural nausea [Unknown]
  - Gastrointestinal sounds abnormal [Unknown]
  - Abdominal distension [Unknown]
